FAERS Safety Report 17818822 (Version 1)
Quarter: 2020Q2

REPORT INFORMATION
  Report Type: Spontaneous
  Country: CA (occurrence: CA)
  Receive Date: 20200523
  Receipt Date: 20200523
  Transmission Date: 20200714
  Serious: Yes (Other)
  Sender: FDA-Public Use
  Company Number: CA-ROCHE-2603641

PATIENT
  Age: 73 Year
  Sex: Male
  Weight: 74 kg

DRUGS (4)
  1. ELOXATIN [Suspect]
     Active Substance: OXALIPLATIN
     Indication: COLORECTAL CANCER METASTATIC
     Dosage: 65.0 MG/M2
     Route: 042
  2. AVASTIN [Suspect]
     Active Substance: BEVACIZUMAB
     Indication: COLORECTAL CANCER METASTATIC
     Route: 042
  3. LEUCOVORIN [FOLINIC ACID] [Suspect]
     Active Substance: LEUCOVORIN
     Indication: COLORECTAL CANCER METASTATIC
     Dosage: 400.0 MG/M2
     Route: 042
  4. FLUOROURACIL. [Suspect]
     Active Substance: FLUOROURACIL
     Indication: COLORECTAL CANCER METASTATIC
     Route: 040

REACTIONS (4)
  - Delirium [Recovered/Resolved]
  - Thrombotic thrombocytopenic purpura [Recovered/Resolved]
  - Acute kidney injury [Recovered/Resolved]
  - Dehydration [Recovered/Resolved]
